FAERS Safety Report 6937518-3 (Version None)
Quarter: 2010Q3

REPORT INFORMATION
  Report Type: 
  Country: None (occurrence: None)
  Receive Date: 20100823
  Receipt Date: 20100813
  Transmission Date: 20110219
  Serious: Yes (Hospitalization)
  Sender: FDA-Public Use
  Company Number: CA-ABBOTT-10P-028-0664132-00

PATIENT
  Age: 54 Year
  Sex: Male

DRUGS (4)
  1. NIASPAN [Suspect]
     Indication: PRODUCT USED FOR UNKNOWN INDICATION
     Dosage: 750MG DAILY
     Route: 048
  2. ACTOS [Concomitant]
     Indication: PRODUCT USED FOR UNKNOWN INDICATION
  3. HUMALOG [Concomitant]
     Indication: PRODUCT USED FOR UNKNOWN INDICATION
  4. NOVOLIN GE NPH [Concomitant]
     Indication: PRODUCT USED FOR UNKNOWN INDICATION
     Dosage: SUS 100 U/ML

REACTIONS (4)
  - ABDOMINAL PAIN [None]
  - BLOOD AMYLASE INCREASED [None]
  - HYPERTRIGLYCERIDAEMIA [None]
  - PANCREATITIS [None]
